FAERS Safety Report 21090490 (Version 3)
Quarter: 2022Q3

REPORT INFORMATION
  Report Type: Spontaneous
  Country: US (occurrence: US)
  Receive Date: 20220715
  Receipt Date: 20220822
  Transmission Date: 20221027
  Serious: No
  Sender: FDA-Public Use
  Company Number: US-BIOMARINAP-US-2022-144379

PATIENT

DRUGS (1)
  1. VIMIZIM [Suspect]
     Active Substance: ELOSULFASE ALFA
     Indication: Mucopolysaccharidosis IV
     Dosage: 250 MILLILITER, QW
     Route: 042

REACTIONS (3)
  - Chest pain [Recovered/Resolved]
  - Chest discomfort [Unknown]
  - Throat tightness [Recovered/Resolved]

NARRATIVE: CASE EVENT DATE: 20220711
